FAERS Safety Report 4710888-2 (Version None)
Quarter: 2005Q3

REPORT INFORMATION
  Report Type: 
  Country: None (occurrence: None)
  Receive Date: 20050711
  Receipt Date: 20050302
  Transmission Date: 20060218
  Serious: Yes (Life-Threatening, Hospitalization)
  Sender: FDA-Public Use
  Company Number: DE-GLAXOSMITHKLINE-D0046030A

PATIENT
  Age: 52 Year
  Sex: Male
  Weight: 105.6 kg

DRUGS (9)
  1. ZYBAN [Suspect]
     Dosage: 150MG PER DAY
     Route: 048
  2. SIMVASTATIN [Concomitant]
     Dosage: 10MG PER DAY
     Route: 048
  3. METOPROLOL [Concomitant]
     Route: 065
  4. DELIX [Concomitant]
     Route: 065
  5. ALDACTONE [Concomitant]
     Route: 065
  6. SORTIS [Concomitant]
     Route: 065
  7. TORSEMIDE [Concomitant]
     Route: 065
  8. ASPIRIN [Concomitant]
     Route: 065
  9. OMEPRAZOLE [Concomitant]
     Route: 065

REACTIONS (5)
  - CARDIAC FAILURE [None]
  - DYSPNOEA [None]
  - FLANK PAIN [None]
  - OXYGEN SATURATION DECREASED [None]
  - SUPRAVENTRICULAR TACHYCARDIA [None]
